FAERS Safety Report 15251744 (Version 2)
Quarter: 2018Q3

REPORT INFORMATION
  Report Type: Spontaneous
  Country: BR (occurrence: BR)
  Receive Date: 20180807
  Receipt Date: 20180814
  Transmission Date: 20181010
  Serious: Yes (Other)
  Sender: FDA-Public Use
  Company Number: BR-PFIZER INC-2018310839

PATIENT
  Age: 44 Year
  Sex: Female

DRUGS (1)
  1. DOSTINEX [Suspect]
     Active Substance: CABERGOLINE
     Indication: ADENOMA BENIGN
     Dosage: 1 TABLET OF 0.5 MG, ONCE WEEKLY
     Dates: start: 20180610, end: 20180612

REACTIONS (24)
  - Anxiety [Recovered/Resolved]
  - Tooth socket haemorrhage [Recovered/Resolved]
  - Eye pain [Recovered/Resolved]
  - Blood pressure increased [Recovered/Resolved]
  - Nausea [Recovered/Resolved]
  - Abnormal behaviour [Recovered/Resolved]
  - Feeling abnormal [Unknown]
  - Impaired work ability [Recovered/Resolved]
  - Inappropriate affect [Recovered/Resolved]
  - Syncope [Recovered/Resolved]
  - Bone pain [Not Recovered/Not Resolved]
  - Retching [Recovered/Resolved]
  - Angina pectoris [Recovered/Resolved]
  - Nasopharyngitis [Recovered/Resolved]
  - Visual impairment [Recovered/Resolved]
  - Depressed mood [Recovered/Resolved]
  - Decreased appetite [Recovered/Resolved]
  - Thirst decreased [Recovered/Resolved]
  - Headache [Recovered/Resolved]
  - Weight increased [Not Recovered/Not Resolved]
  - Dizziness [Recovered/Resolved]
  - Muscle spasms [Recovered/Resolved]
  - Malaise [Unknown]
  - Swelling [Not Recovered/Not Resolved]

NARRATIVE: CASE EVENT DATE: 201806
